FAERS Safety Report 5179891-5 (Version None)
Quarter: 2006Q4

REPORT INFORMATION
  Report Type: 
  Country: None (occurrence: None)
  Receive Date: 20061212
  Receipt Date: 20061129
  Transmission Date: 20070319
  Serious: Yes (Other)
  Sender: FDA-Public Use
  Company Number: 2006148666

PATIENT
  Age: 80 Year
  Sex: Female

DRUGS (2)
  1. LYRICA [Suspect]
     Indication: NEURALGIA
     Dosage: 75 MG (75 MG, 1 IN 1 D)
  2. BUFLOMEDIL (BUFLOMEDIL) [Suspect]

REACTIONS (2)
  - DRUG INTERACTION [None]
  - TOXIC SKIN ERUPTION [None]
